FAERS Safety Report 21254103 (Version 1)
Quarter: 2022Q3

REPORT INFORMATION
  Report Type: Other
  Country: US (occurrence: None)
  Receive Date: 20220825
  Receipt Date: 20220825
  Transmission Date: 20221027
  Serious: No
  Sender: FDA-Public Use
  Company Number: US-ROCHE-3167671

PATIENT
  Age: 67 Year
  Sex: Female

DRUGS (1)
  1. OCREVUS [Suspect]
     Active Substance: OCRELIZUMAB
     Indication: Relapsing multiple sclerosis
     Dosage: ONGOING: YES
     Route: 065
     Dates: start: 20211119

REACTIONS (3)
  - B-lymphocyte count decreased [Not Recovered/Not Resolved]
  - Off label use [Unknown]
  - COVID-19 [Unknown]

NARRATIVE: CASE EVENT DATE: 20211119
